FAERS Safety Report 21124649 (Version 1)
Quarter: 2022Q3

REPORT INFORMATION
  Report Type: Spontaneous
  Country: US (occurrence: None)
  Receive Date: 20220722
  Receipt Date: 20220722
  Transmission Date: 20221026
  Serious: No
  Sender: FDA-Public Use
  Company Number: None

PATIENT
  Age: 55 Year
  Sex: Female
  Weight: 80.1 kg

DRUGS (4)
  1. PAXLOVID [Suspect]
     Active Substance: NIRMATRELVIR\RITONAVIR
  2. LOSARTAN [Concomitant]
     Active Substance: LOSARTAN
  3. RITUXAN [Concomitant]
     Active Substance: RITUXIMAB
  4. EVUSHELD [Concomitant]
     Active Substance: CILGAVIMAB\TIXAGEVIMAB

REACTIONS (3)
  - COVID-19 [None]
  - Productive cough [None]
  - Sputum discoloured [None]

NARRATIVE: CASE EVENT DATE: 20220721
